FAERS Safety Report 11328563 (Version 1)
Quarter: 2015Q3

REPORT INFORMATION
  Report Type: Report from Study
  Country: CO (occurrence: CO)
  Receive Date: 20150731
  Receipt Date: 20150731
  Transmission Date: 20151125
  Serious: Yes (Death, Hospitalization)
  Sender: FDA-Public Use
  Company Number: CO-ABBVIE-15P-036-1437023-00

PATIENT
  Age: 71 Year
  Sex: Male

DRUGS (1)
  1. ZEMPLAR [Suspect]
     Active Substance: PARICALCITOL
     Indication: HYPERPARATHYROIDISM SECONDARY
     Route: 048
     Dates: start: 20150114, end: 20150410

REACTIONS (6)
  - Vertigo [Fatal]
  - General physical health deterioration [Fatal]
  - Abasia [Fatal]
  - Pain in extremity [Fatal]
  - Vomiting [Fatal]
  - Sepsis [Fatal]

NARRATIVE: CASE EVENT DATE: 20150718
